FAERS Safety Report 9531125 (Version 2)
Quarter: 2013Q4

REPORT INFORMATION
  Report Type: Spontaneous
  Country: DE (occurrence: DE)
  Receive Date: 20130918
  Receipt Date: 20131107
  Transmission Date: 20140711
  Serious: Yes (Hospitalization, Other)
  Sender: FDA-Public Use
  Company Number: PHHY2013DE102776

PATIENT
  Sex: Female

DRUGS (9)
  1. TASIGNA [Suspect]
     Indication: CHRONIC MYELOID LEUKAEMIA
     Dosage: 200 MG, QID
     Route: 048
     Dates: start: 201011
  2. XARELTO [Concomitant]
     Indication: ARRHYTHMIA
     Dosage: 20 MG, DAY
     Route: 048
     Dates: start: 201309
  3. XARELTO [Concomitant]
     Indication: ATRIAL FIBRILLATION
  4. CORIFEO [Concomitant]
     Dosage: 10 MG, DAY
     Route: 048
  5. PIRETANIDE [Concomitant]
     Dosage: 6 MG, DAILY
     Route: 048
  6. EUTHYROX [Concomitant]
     Indication: HYPERTHECOSIS
     Dosage: 50 UG, DAILY
     Route: 048
  7. NEBILET [Concomitant]
     Indication: ATRIAL FIBRILLATION
     Dosage: 5 MG, DAILY
     Route: 048
  8. DECORTIN [Concomitant]
     Indication: BRONCHITIS
     Dosage: 20 MG,DAILY
     Dates: start: 201309, end: 20130917
  9. FOSTER [Concomitant]
     Indication: ASTHMA
     Dosage: 100 ?G /6 ?G
     Dates: start: 201306

REACTIONS (3)
  - Atrial fibrillation [Recovered/Resolved]
  - Asthma [Unknown]
  - Bronchitis [Recovering/Resolving]
